FAERS Safety Report 19725856 (Version 2)
Quarter: 2021Q3

REPORT INFORMATION
  Report Type: Report from Study
  Country: CO (occurrence: CO)
  Receive Date: 20210820
  Receipt Date: 20210826
  Transmission Date: 20211014
  Serious: Yes (Other)
  Sender: FDA-Public Use
  Company Number: CO-JNJFOC-20210747332

PATIENT
  Age: 38 Year
  Sex: Male
  Weight: 94 kg

DRUGS (11)
  1. TOPIRAMATE. [Concomitant]
     Active Substance: TOPIRAMATE
  2. TRAZODONE [Concomitant]
     Active Substance: TRAZODONE HYDROCHLORIDE
  3. AMITRIPTYLINE [Concomitant]
     Active Substance: AMITRIPTYLINE
  4. CLOBETAZOL [Concomitant]
     Active Substance: CLOBETASOL PROPIONATE
     Indication: PRODUCT USED FOR UNKNOWN INDICATION
     Route: 065
  5. MESALAZINE [Concomitant]
     Active Substance: MESALAMINE
  6. SERTRALINE [Concomitant]
     Active Substance: SERTRALINE HYDROCHLORIDE
  7. SIMPONI [Suspect]
     Active Substance: GOLIMUMAB
     Indication: PSORIATIC ARTHROPATHY
  8. LEVOMEPROMAZINE [Concomitant]
     Active Substance: LEVOMEPROMAZINE
  9. PREGABALIN. [Concomitant]
     Active Substance: PREGABALIN
  10. TRIMEBUTINE [Concomitant]
     Active Substance: TRIMEBUTINE
  11. SIMPONI [Suspect]
     Active Substance: GOLIMUMAB
     Indication: RHEUMATOID ARTHRITIS
     Dosage: LATEST ADMINISTRATION OF MEDICATION WAS ON 06?JUL?2021
     Route: 058
     Dates: start: 20201104

REACTIONS (4)
  - Skin infection [Not Recovered/Not Resolved]
  - Psoriasis [Not Recovered/Not Resolved]
  - Fungal infection [Not Recovered/Not Resolved]
  - Cellulitis [Recovered/Resolved]

NARRATIVE: CASE EVENT DATE: 202105
